FAERS Safety Report 20015967 (Version 1)
Quarter: 2021Q4

REPORT INFORMATION
  Report Type: Spontaneous
  Country: US (occurrence: None)
  Receive Date: 20211102
  Receipt Date: 20211102
  Transmission Date: 20220303
  Serious: No
  Sender: FDA-Public Use
  Company Number: None

PATIENT
  Age: 34 Year
  Sex: Female
  Weight: 83.25 kg

DRUGS (6)
  1. ARMODAFINIL [Suspect]
     Active Substance: ARMODAFINIL
     Indication: Hypersomnia
     Dosage: OTHER QUANTITY : 1 TABLET(S);?
     Route: 048
  2. Albuterol sulfate (inhaler) [Concomitant]
  3. MONTELUKAST [Concomitant]
     Active Substance: MONTELUKAST SODIUM
  4. Breo (inhaler) [Concomitant]
  5. ZYRTEC [Concomitant]
     Active Substance: CETIRIZINE HYDROCHLORIDE
  6. Atrantil/FDGrad [Concomitant]

REACTIONS (3)
  - Mental disorder [None]
  - Sleep disorder [None]
  - Manufacturing issue [None]

NARRATIVE: CASE EVENT DATE: 20211101
